FAERS Safety Report 7020128-X (Version None)
Quarter: 2010Q3

REPORT INFORMATION
  Report Type: 
  Country: None (occurrence: None)
  Receive Date: 20100929
  Receipt Date: 20100923
  Transmission Date: 20110219
  Serious: Yes (Hospitalization)
  Sender: FDA-Public Use
  Company Number: FR-JNJFOC-981005-107013823

PATIENT
  Age: 65 Year
  Sex: Male

DRUGS (3)
  1. TYLENOL W/ CODEINE [Suspect]
     Indication: PAIN
     Route: 048
     Dates: start: 19940707, end: 19941020
  2. TYLENOL W/ CODEINE [Suspect]
     Route: 048
     Dates: start: 19940707, end: 19941020
  3. ALL OTHER THERAPEUTIC PRODUCTS [Concomitant]

REACTIONS (1)
  - PANCREATITIS [None]
